FAERS Safety Report 24320597 (Version 2)
Quarter: 2024Q4

REPORT INFORMATION
  Report Type: Report from Study
  Country: US (occurrence: US)
  Receive Date: 20240915
  Receipt Date: 20241006
  Transmission Date: 20250115
  Serious: Yes (Hospitalization)
  Sender: ROCHE
  Company Number: US-ROCHE-10000078568

PATIENT
  Age: 58 Year
  Sex: Male
  Weight: 104.32 kg

DRUGS (12)
  1. OCREVUS [Suspect]
     Active Substance: OCRELIZUMAB
     Indication: Progressive multiple sclerosis
     Route: 042
     Dates: start: 202002
  2. ATORVASTATIN [Concomitant]
     Active Substance: ATORVASTATIN
     Indication: Blood cholesterol
     Dosage: AT NIGHT
     Route: 048
     Dates: start: 201312
  3. METFORMIN [Concomitant]
     Active Substance: METFORMIN HYDROCHLORIDE
     Indication: Blood glucose increased
     Dosage: MORNING
     Route: 048
     Dates: start: 202305
  4. PLAVIX [Concomitant]
     Active Substance: CLOPIDOGREL BISULFATE
     Dosage: MORNING
     Route: 048
     Dates: start: 201312
  5. METOPROLOL [Concomitant]
     Active Substance: METOPROLOL
     Dosage: MORNING AND NIGHT
     Route: 048
     Dates: start: 201312
  6. LISINOPRIL [Concomitant]
     Active Substance: LISINOPRIL
     Indication: Hypertension
     Dosage: MORNING
     Route: 048
  7. AMANTADINE [Concomitant]
     Active Substance: AMANTADINE
     Indication: Muscle spasticity
     Dosage: 2 TABLETS EVERY MORNING
     Route: 048
     Dates: start: 2018
  8. BACLOFEN [Concomitant]
     Active Substance: BACLOFEN
     Dosage: 2 TABLETS IN MORNING, CAN TAKE MORE AS NEEDED
     Route: 048
     Dates: start: 2019
  9. OXYBUTYNIN [Concomitant]
     Active Substance: OXYBUTYNIN
     Dosage: MORNING
     Route: 048
     Dates: start: 2019
  10. GABAPENTIN [Concomitant]
     Active Substance: GABAPENTIN
     Indication: Muscle spasticity
     Dosage: 2 CAPSULES AT NIGHT
     Route: 048
     Dates: start: 2019
  11. ESCITALOPRAM [Concomitant]
     Active Substance: ESCITALOPRAM OXALATE
     Indication: Anxiety
     Dosage: MORNING
     Route: 048
  12. ASPIRIN [Concomitant]
     Active Substance: ASPIRIN
     Dosage: MORNING
     Route: 048
     Dates: start: 201312

REACTIONS (3)
  - Asthenia [Recovered/Resolved]
  - Pyrexia [Recovered/Resolved]
  - COVID-19 pneumonia [Recovered/Resolved]

NARRATIVE: CASE EVENT DATE: 20240801
